FAERS Safety Report 18528580 (Version 1)
Quarter: 2020Q4

REPORT INFORMATION
  Report Type: Report from Study
  Country: ES (occurrence: ES)
  Receive Date: 20201120
  Receipt Date: 20201120
  Transmission Date: 20210114
  Serious: Yes (Death, Life-Threatening, Hospitalization)
  Sender: FDA-Public Use
  Company Number: ES-JNJFOC-20170624553

PATIENT
  Age: 79 Year
  Sex: Male
  Weight: 79 kg

DRUGS (20)
  1. PLACEBO [Suspect]
     Active Substance: UNSPECIFIED INGREDIENT
     Indication: PROSTATE CANCER METASTATIC
     Dosage: STOP DATE: 11/JUL/2017
     Route: 048
     Dates: start: 20160622
  2. ABIRATERONE ACETATE. [Suspect]
     Active Substance: ABIRATERONE ACETATE
     Indication: PROSTATE CANCER METASTATIC
     Dosage: STOP DATE: 11/JUL/2017
     Route: 048
     Dates: start: 20160622
  3. CITALOPRAM [Concomitant]
     Active Substance: CITALOPRAM HYDROBROMIDE
     Indication: DEPRESSION
     Route: 048
     Dates: start: 20110704
  4. MIDAZOLAM. [Concomitant]
     Active Substance: MIDAZOLAM
     Indication: SEDATION
     Dosage: 12/JUL/2017 TO 14/JUL/2017
  5. PREDNSIONE [Suspect]
     Active Substance: PREDNISONE
     Indication: PROSTATE CANCER METASTATIC
     Dosage: STOP DATE: 11/JUL/2017
     Route: 048
     Dates: start: 20160622
  6. RANITIDINE. [Concomitant]
     Active Substance: RANITIDINE
     Indication: DYSPEPSIA
     Route: 048
     Dates: start: 20161130
  7. INNOHEP [Concomitant]
     Active Substance: TINZAPARIN SODIUM
     Indication: PULMONARY EMBOLISM
     Route: 058
     Dates: start: 20161017
  8. CLEBOPRIDA [Concomitant]
     Indication: DYSPEPSIA
     Dates: start: 20110926
  9. CINITAPRIDE. [Concomitant]
     Active Substance: CINITAPRIDE
     Indication: DYSPEPSIA
     Dosage: STOP DATE 13/JUL/2017
     Route: 048
  10. IBUPROFEN. [Concomitant]
     Active Substance: IBUPROFEN
     Indication: BACK PAIN
     Route: 065
  11. METOPROLOL. [Concomitant]
     Active Substance: METOPROLOL
     Indication: ATRIAL FIBRILLATION
     Dosage: START DATE: 01/JUL/2017
     Route: 048
  12. SINTROM [Concomitant]
     Active Substance: ACENOCOUMAROL
     Indication: PULMONARY EMBOLISM
     Route: 048
     Dates: start: 20170512, end: 20170628
  13. ENOXAPARINA SODICA [Concomitant]
     Active Substance: ENOXAPARIN SODIUM
     Indication: PULMONARY EMBOLISM
     Route: 058
     Dates: start: 20170629
  14. PREGABALINA [Concomitant]
     Active Substance: PREGABALIN
     Indication: BACK PAIN
     Dosage: //2017 TO STOP DATE: 13/JUL/2017
     Route: 048
  15. SIMETHICONE (DIMETHICONE) [Concomitant]
     Active Substance: DIMETHICONE
     Indication: DYSPEPSIA
     Route: 048
     Dates: start: 20110926
  16. PENTOXIFILINA [Concomitant]
     Active Substance: PENTOXIFYLLINE
     Indication: PERIPHERAL VENOUS DISEASE
     Route: 048
     Dates: start: 20160516
  17. SOLIFENACINA [Concomitant]
     Indication: LOWER URINARY TRACT SYMPTOMS
     Route: 048
     Dates: start: 20130121
  18. FUROSEMIDE. [Concomitant]
     Active Substance: FUROSEMIDE
     Indication: OEDEMA
     Route: 048
     Dates: start: 20170626, end: 20170628
  19. ESPIRONOLACTONA [Concomitant]
     Active Substance: SPIRONOLACTONE
     Indication: HYPOKALAEMIA
     Dosage: 01/JUL/2017 TO  02/JUL/2017
     Route: 048
  20. ACENOCUMAROL [Concomitant]
     Active Substance: ACENOCOUMAROL
     Indication: PULMONARY EMBOLISM
     Route: 048
     Dates: start: 20170512, end: 20170628

REACTIONS (5)
  - Cardiac failure [Fatal]
  - Multiple organ dysfunction syndrome [Not Recovered/Not Resolved]
  - Anaemia [Not Recovered/Not Resolved]
  - Atrial fibrillation [Recovered/Resolved with Sequelae]
  - Rectal haemorrhage [Not Recovered/Not Resolved]

NARRATIVE: CASE EVENT DATE: 20170621
